FAERS Safety Report 23886432 (Version 2)
Quarter: 2024Q2

REPORT INFORMATION
  Report Type: Spontaneous
  Country: CO (occurrence: CO)
  Receive Date: 20240522
  Receipt Date: 20240612
  Transmission Date: 20240716
  Serious: Yes (Other)
  Sender: FDA-Public Use
  Company Number: CO-BRISTOL-MYERS SQUIBB COMPANY-2024-077599

PATIENT
  Age: 63 Year
  Sex: Female

DRUGS (3)
  1. ELIQUIS [Suspect]
     Active Substance: APIXABAN
     Indication: Product used for unknown indication
  2. ELIQUIS [Suspect]
     Active Substance: APIXABAN
  3. ELIQUIS [Suspect]
     Active Substance: APIXABAN
     Dates: start: 20240506

REACTIONS (10)
  - Cardiac fibrillation [Unknown]
  - Gastrointestinal disorder [Unknown]
  - Chest pain [Unknown]
  - Feeling abnormal [Unknown]
  - General physical health deterioration [Unknown]
  - Tremor [Unknown]
  - Hypertension [Unknown]
  - Off label use [Unknown]
  - Product dose omission issue [Unknown]
  - Insurance issue [Unknown]
